FAERS Safety Report 5264538-X (Version None)
Quarter: 2007Q1

REPORT INFORMATION
  Report Type: 
  Country: None (occurrence: None)
  Receive Date: 20070314
  Receipt Date: 20070309
  Transmission Date: 20070707
  Serious: Yes (Life-Threatening)
  Sender: FDA-Public Use
  Company Number: PHRM2007FR00727

PATIENT
  Age: 40 Year
  Sex: Female

DRUGS (1)
  1. SYNTOCINON [Suspect]
     Indication: CAESAREAN SECTION
     Dosage: UNK, UNK
     Dates: start: 20070116, end: 20070116

REACTIONS (2)
  - HYPERTENSION [None]
  - UTERINE HAEMORRHAGE [None]
